FAERS Safety Report 26162468 (Version 1)
Quarter: 2025Q4

REPORT INFORMATION
  Report Type: Spontaneous
  Country: EU (occurrence: EU)
  Receive Date: 20251216
  Receipt Date: 20251216
  Transmission Date: 20260117
  Serious: Yes (Other)
  Sender: ROCHE
  Company Number: EU-ROCHE-10000454788

PATIENT
  Age: 70 Year
  Sex: Male

DRUGS (1)
  1. TECENTRIQ [Suspect]
     Active Substance: ATEZOLIZUMAB
     Indication: Non-small cell lung cancer metastatic
     Dosage: 3RD CYCLE
     Route: 042
     Dates: start: 202508, end: 202510

REACTIONS (7)
  - Asthenia [Unknown]
  - Non-small cell lung cancer metastatic [Unknown]
  - Hypotension [Unknown]
  - Hyponatraemia [Unknown]
  - Bladder neoplasm [Unknown]
  - Peripheral arterial occlusive disease [Unknown]
  - Dental caries [Unknown]

NARRATIVE: CASE EVENT DATE: 20251101
